FAERS Safety Report 14418081 (Version 1)
Quarter: 2018Q1

REPORT INFORMATION
  Report Type: Spontaneous
  Country: TN (occurrence: TN)
  Receive Date: 20180122
  Receipt Date: 20180122
  Transmission Date: 20180509
  Serious: Yes (Other)
  Sender: FDA-Public Use
  Company Number: TN-MYLANLABS-2018M1003993

PATIENT
  Age: 53 Year
  Sex: Female

DRUGS (3)
  1. OXACILLIN [Suspect]
     Active Substance: OXACILLIN SODIUM
     Indication: SYNOVITIS
     Dosage: 100 MG/KG/DAY
     Route: 065
     Dates: start: 2016, end: 2016
  2. GENTALLINE [Concomitant]
     Active Substance: GENTAMICIN SULFATE
     Indication: SYNOVITIS
     Dosage: 160 MG/KG/DAY
     Route: 065
     Dates: start: 2016
  3. THEOPHYLLINE [Concomitant]
     Active Substance: THEOPHYLLINE ANHYDROUS
     Indication: ASTHMA
     Dosage: UNK
     Route: 065

REACTIONS (1)
  - Drug reaction with eosinophilia and systemic symptoms [Recovered/Resolved]
